FAERS Safety Report 8228339-2 (Version None)
Quarter: 2012Q1

REPORT INFORMATION
  Report Type: 
  Country: None (occurrence: None)
  Receive Date: 20120322
  Receipt Date: 20110923
  Transmission Date: 20120608
  Serious: Yes (Other)
  Sender: FDA-Public Use
  Company Number: US-BRISTOL-MYERS SQUIBB COMPANY-16092769

PATIENT
  Age: 78 Year
  Sex: Male

DRUGS (2)
  1. BENADRYL [Concomitant]
     Indication: PREMEDICATION
     Route: 042
     Dates: start: 20110914
  2. ERBITUX [Suspect]
     Indication: HEAD AND NECK CANCER
     Dosage: CONTINUED ON TREATMENT 250 MG/M2 AFTER 1 WEEK.
     Route: 042
     Dates: start: 20110914

REACTIONS (5)
  - DYSPNOEA [None]
  - BLOOD PRESSURE INCREASED [None]
  - PYREXIA [None]
  - TACHYCARDIA [None]
  - OXYGEN SATURATION DECREASED [None]
